FAERS Safety Report 16510367 (Version 1)
Quarter: 2019Q3

REPORT INFORMATION
  Report Type: Spontaneous
  Country: US (occurrence: US)
  Receive Date: 20190702
  Receipt Date: 20190702
  Transmission Date: 20191004
  Serious: Yes (Hospitalization)
  Sender: FDA-Public Use
  Company Number: US-ROCHE-2347688

PATIENT
  Age: 57 Year
  Sex: Female

DRUGS (1)
  1. NUTROPIN [Suspect]
     Active Substance: SOMATROPIN
     Indication: HYPOPITUITARISM
     Dosage: AQ NUSPIN 10 PEN STRENGTH: 10 MG/ 2 ML
     Route: 058
     Dates: start: 20190203

REACTIONS (2)
  - Upper gastrointestinal haemorrhage [Unknown]
  - Fatigue [Unknown]

NARRATIVE: CASE EVENT DATE: 20190603
